FAERS Safety Report 23737185 (Version 1)
Quarter: 2024Q2

REPORT INFORMATION
  Report Type: Spontaneous
  Country: JP (occurrence: JP)
  Receive Date: 20240412
  Receipt Date: 20240412
  Transmission Date: 20240716
  Serious: Yes (Hospitalization)
  Sender: FDA-Public Use
  Company Number: JP-MTPC-MTPC2024-0005086

PATIENT
  Age: 7 Decade
  Sex: Female

DRUGS (2)
  1. VADADUSTAT [Suspect]
     Active Substance: VADADUSTAT
     Indication: Nephrogenic anaemia
     Dosage: UNK
     Route: 048
  2. VADADUSTAT [Suspect]
     Active Substance: VADADUSTAT
     Dosage: UNK
     Route: 048

REACTIONS (1)
  - Vascular graft [Recovering/Resolving]
